FAERS Safety Report 4771954-9 (Version None)
Quarter: 2005Q3

REPORT INFORMATION
  Report Type: 
  Country: None (occurrence: None)
  Receive Date: 20050916
  Receipt Date: 20050908
  Transmission Date: 20060218
  Serious: Yes (Hospitalization)
  Sender: FDA-Public Use
  Company Number: GXKR2005FR01569

PATIENT
  Age: 85 Year
  Sex: Female

DRUGS (9)
  1. ACE INHIBITOR NOS [Concomitant]
  2. DIURETICS [Concomitant]
  3. FLUOXETINE [Suspect]
     Indication: DEPRESSION
  4. CLARITHROMYCIN [Suspect]
     Indication: BRONCHITIS
  5. VITAMIN K ANTAGONIST [Suspect]
     Indication: ISCHAEMIC CARDIOMYOPATHY
  6. BENZODIAZEPINES [Concomitant]
     Indication: ANXIETY
  7. HMG COA REDUCTASE INHIBITORS [Concomitant]
  8. NITRATES [Concomitant]
     Indication: HYPERTENSION
  9. CARBAMAZEPINE [Suspect]
     Indication: BIPOLAR I DISORDER

REACTIONS (9)
  - ANTIDEPRESSANT DRUG LEVEL ABOVE THERAPEUTIC [None]
  - ASTERIXIS [None]
  - CONFUSIONAL STATE [None]
  - CYTOLYTIC HEPATITIS [None]
  - DRUG INTERACTION [None]
  - DRUG LEVEL INCREASED [None]
  - ENCEPHALOPATHY [None]
  - HEPATITIS CHOLESTATIC [None]
  - INTERNATIONAL NORMALISED RATIO INCREASED [None]
